FAERS Safety Report 11637919 (Version 1)
Quarter: 2015Q4

REPORT INFORMATION
  Report Type: Spontaneous
  Country: US (occurrence: US)
  Receive Date: 20151016
  Receipt Date: 20151016
  Transmission Date: 20160304
  Serious: Yes (Death, Hospitalization)
  Sender: FDA-Public Use
  Company Number: US-TEVA-601540USA

PATIENT
  Age: 50 Year
  Sex: Female

DRUGS (2)
  1. DAUNORUBICIN [Suspect]
     Active Substance: DAUNORUBICIN
     Indication: ACUTE MYELOID LEUKAEMIA
     Route: 042
  2. CYTARABINE. [Suspect]
     Active Substance: CYTARABINE
     Indication: ACUTE MYELOID LEUKAEMIA
     Dosage: HIGH-DOSE
     Route: 042

REACTIONS (4)
  - Central nervous system infection [Fatal]
  - Bacillus infection [Fatal]
  - Thrombocytopenia [Unknown]
  - Neutropenia [Not Recovered/Not Resolved]
